FAERS Safety Report 22286248 (Version 1)
Quarter: 2023Q2

REPORT INFORMATION
  Report Type: Report from Study
  Country: US (occurrence: US)
  Receive Date: 20230505
  Receipt Date: 20230505
  Transmission Date: 20230722
  Serious: Yes (Other)
  Sender: FDA-Public Use
  Company Number: US-ABBVIE-4751367

PATIENT
  Age: 63 Year
  Sex: Female

DRUGS (3)
  1. HUMIRA [Suspect]
     Active Substance: ADALIMUMAB
     Indication: Uveitis
     Route: 058
  2. HUMIRA [Suspect]
     Active Substance: ADALIMUMAB
     Dosage: CITRATE FREE
     Route: 058
  3. QULIPTA [Concomitant]
     Active Substance: ATOGEPANT
     Indication: Product used for unknown indication

REACTIONS (11)
  - Cataract [Unknown]
  - Epistaxis [Unknown]
  - Headache [Unknown]
  - Abdominal pain [Unknown]
  - Throat irritation [Unknown]
  - Taste disorder [Unknown]
  - Neck pain [Unknown]
  - Eye inflammation [Unknown]
  - Mammoplasty [Unknown]
  - Sneezing [Unknown]
  - Impaired gastric emptying [Unknown]

NARRATIVE: CASE EVENT DATE: 20210501
